APPROVED DRUG PRODUCT: STALEVO 150
Active Ingredient: CARBIDOPA; ENTACAPONE; LEVODOPA
Strength: 37.5MG;200MG;150MG
Dosage Form/Route: TABLET;ORAL
Application: N021485 | Product #003 | TE Code: AB
Applicant: ORION PHARMA
Approved: Jun 11, 2003 | RLD: Yes | RS: No | Type: RX